FAERS Safety Report 18901341 (Version 5)
Quarter: 2025Q2

REPORT INFORMATION
  Report Type: Spontaneous
  Country: PT (occurrence: PT)
  Receive Date: 20210217
  Receipt Date: 20250530
  Transmission Date: 20250716
  Serious: Yes (Hospitalization, Other)
  Sender: AUROBINDO
  Company Number: PT-MLMSERVICE-20210203-2701633-1

PATIENT
  Age: 71 Year
  Sex: Male
  Weight: 70 kg

DRUGS (2)
  1. AMOXICILLIN\CLAVULANIC ACID [Suspect]
     Active Substance: AMOXICILLIN\CLAVULANIC ACID
     Indication: Respiratory tract infection
     Dosage: 1 DOSAGE FORM, TWO TIMES A DAY
     Route: 048
     Dates: start: 2019, end: 2019
  2. AMOXICILLIN\CLAVULANIC ACID [Suspect]
     Active Substance: AMOXICILLIN\CLAVULANIC ACID
     Indication: Tooth abscess
     Dosage: ONCE A DAY (875/125 MG TWICE A DAY )
     Route: 048

REACTIONS (11)
  - Autoimmune hepatitis [Recovering/Resolving]
  - Jaundice cholestatic [Recovered/Resolved]
  - Drug-induced liver injury [Recovered/Resolved]
  - Rash macular [Recovered/Resolved]
  - Cholestasis [Unknown]
  - Hyperbilirubinaemia [Unknown]
  - Pruritus [Recovering/Resolving]
  - Deficiency of bile secretion [Recovering/Resolving]
  - Choluria [Recovering/Resolving]
  - Jaundice [Recovering/Resolving]
  - Rash [Unknown]

NARRATIVE: CASE EVENT DATE: 20190101
